FAERS Safety Report 25158715 (Version 1)
Quarter: 2025Q2

REPORT INFORMATION
  Report Type: Spontaneous
  Country: US (occurrence: US)
  Receive Date: 20250404
  Receipt Date: 20250404
  Transmission Date: 20250716
  Serious: Yes (Life-Threatening, Hospitalization, Other)
  Sender: CATALYST PHARMA
  Company Number: US-CATALYST PHARMACEUTICALS, INC-US-CATA-25-00391

PATIENT
  Age: 1 Year
  Sex: Male
  Weight: 6.213 kg

DRUGS (14)
  1. FIRDAPSE [Suspect]
     Active Substance: AMIFAMPRIDINE PHOSPHATE
     Indication: Congenital myasthenic syndrome
     Dosage: DISSOLVE 1 TABLET IN 10 ML OF WATER, GIVE 2 ML VIA NG TUBE 3 TIMES A DAY
     Dates: start: 20240417, end: 202408
  2. FIRDAPSE [Suspect]
     Active Substance: AMIFAMPRIDINE PHOSPHATE
     Dosage: 2.5 ML (DISSOLVE ONE 10 MG TABLET IN 10 ML OF WATER) 4 TIMES A DAY
     Dates: start: 20240806
  3. CLONIDINE [Concomitant]
     Active Substance: CLONIDINE
     Indication: Agitation
     Route: 065
  4. POLY VI SOL [Concomitant]
     Indication: Hypovitaminosis
     Route: 065
  5. ATROVENT [Concomitant]
     Active Substance: IPRATROPIUM BROMIDE
     Indication: Congenital myasthenic syndrome
     Route: 055
  6. ATROVENT [Concomitant]
     Active Substance: IPRATROPIUM BROMIDE
     Indication: Asthma
  7. MORPHINE [Concomitant]
     Active Substance: MORPHINE
     Indication: Agitation
     Route: 065
  8. ATIVAN [Concomitant]
     Active Substance: LORAZEPAM
     Indication: Agitation
     Route: 065
  9. ALBUTEROL [Concomitant]
     Active Substance: ALBUTEROL
     Indication: Bronchospasm
     Route: 055
  10. GLYCOPYRROLATE [Concomitant]
     Active Substance: GLYCOPYRROLATE
     Indication: Secretion discharge
     Route: 065
  11. IPRATROPIUM [Concomitant]
     Active Substance: IPRATROPIUM
     Indication: Supportive care
     Route: 055
  12. MESTINON [Concomitant]
     Active Substance: PYRIDOSTIGMINE BROMIDE
     Indication: Congenital myasthenic syndrome
     Route: 065
  13. MESTINON [Concomitant]
     Active Substance: PYRIDOSTIGMINE BROMIDE
     Indication: Asthma
  14. FAMOTIDINE [Concomitant]
     Active Substance: FAMOTIDINE
     Indication: Gastrooesophageal reflux disease
     Route: 065

REACTIONS (5)
  - Respiratory arrest [Recovered/Resolved]
  - Aspiration [Recovered/Resolved]
  - Epistaxis [Recovered/Resolved]
  - Haematemesis [Recovered/Resolved]
  - Ear tube insertion [Not Recovered/Not Resolved]

NARRATIVE: CASE EVENT DATE: 20250306
